FAERS Safety Report 16797788 (Version 1)
Quarter: 2019Q3

REPORT INFORMATION
  Report Type: Spontaneous
  Country: FR (occurrence: FR)
  Receive Date: 20190912
  Receipt Date: 20190912
  Transmission Date: 20191005
  Serious: Yes (Hospitalization)
  Sender: FDA-Public Use
  Company Number: FR-TEVA-2019-FR-1104808

PATIENT
  Age: 90 Year
  Sex: Male

DRUGS (5)
  1. FUROSEMIDE. [Suspect]
     Active Substance: FUROSEMIDE
     Indication: HYPERTENSION
     Dosage: 40 MG
     Route: 048
     Dates: end: 20190319
  2. DILTIAZEM (CHLORHYDRATE DE) [Suspect]
     Active Substance: DILTIAZEM HYDROCHLORIDE
     Indication: HYPERTENSION
     Dosage: 120 MG
     Route: 048
     Dates: end: 20190319
  3. RESIKALI [Concomitant]
     Active Substance: CALCIUM POLYSTYRENE SULFONATE
     Dosage: 2 IU
     Route: 048
  4. SOLUPRED (PREDNISOLONE SODIUM SULFOBENZOATE) [Suspect]
     Active Substance: PREDNISOLONE SODIUM METAZOATE
     Indication: GOUT
     Dosage: 4 DF
     Route: 048
  5. WARFARINE SODIQUE [Concomitant]
     Active Substance: WARFARIN SODIUM
     Dosage: 3 MG
     Route: 048

REACTIONS (1)
  - Diabetic metabolic decompensation [Recovering/Resolving]

NARRATIVE: CASE EVENT DATE: 20190315
